FAERS Safety Report 4734437-8 (Version None)
Quarter: 2005Q3

REPORT INFORMATION
  Report Type: 
  Country: None (occurrence: None)
  Receive Date: 20050804
  Receipt Date: 20050707
  Transmission Date: 20060218
  Serious: Yes (Hospitalization)
  Sender: FDA-Public Use
  Company Number: JP-ROCHE-410113

PATIENT
  Age: 39 Year
  Sex: Male

DRUGS (4)
  1. PEGASYS [Suspect]
     Route: 058
     Dates: start: 20050621, end: 20050628
  2. PEGASYS [Suspect]
     Route: 058
     Dates: start: 20050708
  3. BASEN [Concomitant]
     Route: 048
     Dates: start: 20050607, end: 20050628
  4. ACTOS [Concomitant]
     Route: 048
     Dates: start: 20050607, end: 20050628

REACTIONS (2)
  - GRANULOCYTOPENIA [None]
  - PYREXIA [None]
